FAERS Safety Report 17883283 (Version 3)
Quarter: 2020Q3

REPORT INFORMATION
  Report Type: Spontaneous
  Country: US (occurrence: US)
  Receive Date: 20200611
  Receipt Date: 20200910
  Transmission Date: 20201103
  Serious: No
  Sender: FDA-Public Use
  Company Number: US-ASTRAZENECA-2020SE71444

PATIENT
  Sex: Female
  Weight: 36.3 kg

DRUGS (1)
  1. SYMBICORT [Suspect]
     Active Substance: BUDESONIDE\FORMOTEROL FUMARATE DIHYDRATE
     Indication: CHRONIC OBSTRUCTIVE PULMONARY DISEASE
     Dosage: 160MCG/4.5MCG, 2 PUFFS, TWICE DAILY INHALATIONS
     Route: 055

REACTIONS (3)
  - Device malfunction [Unknown]
  - Anxiety [Unknown]
  - Incorrect dose administered by device [Unknown]
